FAERS Safety Report 11413071 (Version 1)
Quarter: 2015Q3

REPORT INFORMATION
  Report Type: Spontaneous
  Country: US (occurrence: US)
  Receive Date: 20150821
  Receipt Date: 20150821
  Transmission Date: 20151125
  Serious: No
  Sender: FDA-Public Use
  Company Number: US-ELI_LILLY_AND_COMPANY-US201208003779

PATIENT
  Sex: Female

DRUGS (2)
  1. HUMULIN R [Suspect]
     Active Substance: INSULIN HUMAN
     Indication: DIABETES MELLITUS
     Dosage: 14 U, EACH MORNING
  2. HUMULIN R [Suspect]
     Active Substance: INSULIN HUMAN
     Dosage: 12 U, EACH EVENING

REACTIONS (9)
  - Chest pain [Unknown]
  - Headache [Unknown]
  - Adverse event [Unknown]
  - Oedema peripheral [Unknown]
  - Pain in extremity [Unknown]
  - Blood glucose increased [Unknown]
  - Weight increased [Unknown]
  - Blood glucose decreased [Unknown]
  - Tremor [Unknown]
